FAERS Safety Report 20554624 (Version 11)
Quarter: 2023Q1

REPORT INFORMATION
  Report Type: Report from Study
  Country: EG (occurrence: EG)
  Receive Date: 20220304
  Receipt Date: 20230218
  Transmission Date: 20230417
  Serious: Yes (Other)
  Sender: FDA-Public Use
  Company Number: EG-NOVARTISPH-NVSC2022EG046109

PATIENT
  Age: 72 Year
  Sex: Male

DRUGS (11)
  1. ENTRESTO [Suspect]
     Active Substance: SACUBITRIL\VALSARTAN
     Indication: Cardiac failure
     Dosage: 1 DOSAGE FORM (100 MG), BID
     Route: 048
     Dates: start: 20210621
  2. ENTRESTO [Suspect]
     Active Substance: SACUBITRIL\VALSARTAN
     Dosage: 1 DOSAGE FORM, BID, (200 MG)
     Route: 048
     Dates: start: 20210721
  3. ENTRESTO [Suspect]
     Active Substance: SACUBITRIL\VALSARTAN
     Dosage: 1 DOSAGE FORM, BID, (100 MG)
     Route: 065
  4. VILDAGLIPTIN [Concomitant]
     Active Substance: VILDAGLIPTIN
     Indication: Diabetes mellitus
     Dosage: 1 DOSAGE FORM, QD (ONE TABLET DAILY AT NIGHT)
     Route: 065
     Dates: start: 2021
  5. VILDAGLIPTIN [Concomitant]
     Active Substance: VILDAGLIPTIN
     Dosage: 1 DOSAGE FORM, QD (ONE TABLET DAILY AT NIGHT)
     Route: 065
     Dates: start: 202107
  6. CRESTOR [Concomitant]
     Active Substance: ROSUVASTATIN CALCIUM
     Indication: Hyperlipidaemia
     Dosage: 1 DOSAGE FORM, QD
     Route: 065
     Dates: start: 2004
  7. ASPIRIN [Concomitant]
     Active Substance: ASPIRIN
     Indication: Cardiac disorder
     Dosage: 1 DOSAGE FORM, QD
     Route: 065
     Dates: start: 2004
  8. BISOPROLOL FUMARATE [Concomitant]
     Active Substance: BISOPROLOL FUMARATE
     Indication: Hypertension
     Dosage: UNK (STOPPED 4 MONTHS AGO)
     Route: 065
     Dates: start: 2010
  9. OSTEOCARE [Concomitant]
     Active Substance: CALCIUM\CHOLECALCIFEROL\MAGNESIUM\ZINC
     Indication: Prophylaxis
     Dosage: 1 DOSAGE FORM, BID
     Route: 065
     Dates: start: 202112
  10. CIPRALEX [Concomitant]
     Active Substance: ESCITALOPRAM OXALATE
     Indication: Anxiety
     Dosage: 2 DOSAGE FORM, QD
     Route: 065
     Dates: start: 20200515
  11. ATACAND [Concomitant]
     Active Substance: CANDESARTAN CILEXETIL
     Indication: Hypertension
     Dosage: 1 DOSAGE FORM, BID
     Route: 065
     Dates: start: 2008, end: 2012

REACTIONS (43)
  - Prostatomegaly [Unknown]
  - Pruritus [Recovered/Resolved]
  - Blood creatinine increased [Not Recovered/Not Resolved]
  - Cataract [Recovered/Resolved]
  - Diplopia [Not Recovered/Not Resolved]
  - Eye pain [Not Recovered/Not Resolved]
  - Fatigue [Recovered/Resolved]
  - Hypoxia [Unknown]
  - Gait disturbance [Unknown]
  - Renal impairment [Unknown]
  - Hypothyroidism [Recovered/Resolved]
  - Pruritus [Unknown]
  - Laziness [Not Recovered/Not Resolved]
  - Somnolence [Not Recovered/Not Resolved]
  - Hypersomnia [Not Recovered/Not Resolved]
  - Head discomfort [Not Recovered/Not Resolved]
  - Dysuria [Recovering/Resolving]
  - Prostatitis [Recovering/Resolving]
  - Prostatic pain [Recovering/Resolving]
  - Urinary tract infection [Recovering/Resolving]
  - Oedema peripheral [Recovering/Resolving]
  - Hypotension [Unknown]
  - Back pain [Recovering/Resolving]
  - Overweight [Unknown]
  - Hepatic steatosis [Unknown]
  - Heart rate decreased [Unknown]
  - Weight decreased [Recovered/Resolved]
  - Heart rate increased [Recovering/Resolving]
  - Glucose urine present [Unknown]
  - Red blood cell sedimentation rate increased [Unknown]
  - Peripheral swelling [Unknown]
  - Ejection fraction decreased [Unknown]
  - Irritability [Recovering/Resolving]
  - Influenza [Recovered/Resolved]
  - Depressed mood [Unknown]
  - Exostosis [Unknown]
  - Dyspnoea [Recovering/Resolving]
  - Muscle spasms [Recovered/Resolved]
  - Influenza like illness [Recovering/Resolving]
  - Ear discomfort [Recovering/Resolving]
  - Pain [Recovering/Resolving]
  - Therapeutic response unexpected [Unknown]
  - Product dispensing error [Unknown]

NARRATIVE: CASE EVENT DATE: 20210701
